FAERS Safety Report 23230813 (Version 1)
Quarter: 2023Q4

REPORT INFORMATION
  Report Type: Spontaneous
  Country: GR (occurrence: GR)
  Receive Date: 20231127
  Receipt Date: 20231127
  Transmission Date: 20240109
  Serious: Yes (Other)
  Sender: FDA-Public Use
  Company Number: GR-BAYER-2023A163616

PATIENT
  Age: 77 Year
  Sex: Male

DRUGS (1)
  1. CIPROFLOXACIN [Suspect]
     Active Substance: CIPROFLOXACIN
     Dosage: UNK

REACTIONS (1)
  - Erectile dysfunction [None]

NARRATIVE: CASE EVENT DATE: 20231107
